FAERS Safety Report 25775716 (Version 1)
Quarter: 2025Q3

REPORT INFORMATION
  Report Type: Spontaneous
  Country: US (occurrence: US)
  Receive Date: 20250909
  Receipt Date: 20250909
  Transmission Date: 20251020
  Serious: Yes (Other)
  Sender: GE HEALTHCARE
  Company Number: US-GE HEALTHCARE-2025CSU011901

PATIENT
  Age: 75 Year
  Sex: Female
  Weight: 63.5 kg

DRUGS (9)
  1. VIZAMYL [Suspect]
     Active Substance: FLUTEMETAMOL F-18
     Indication: Imaging procedure
     Route: 042
     Dates: start: 20250826
  2. MAGNESIUM [Concomitant]
     Active Substance: MAGNESIUM
     Dosage: UNK, TID
  3. DIETARY SUPPLEMENT [Concomitant]
     Active Substance: DIETARY SUPPLEMENT
     Dosage: UNK, BID
  4. VITAMIN D3 [Concomitant]
     Active Substance: CHOLECALCIFEROL
     Dosage: 50 MG, QD
  5. B12 [Concomitant]
  6. CALCIUM [Concomitant]
     Active Substance: CALCIUM
     Dosage: 300 MG, QD
  7. HERBALS\TURMERIC [Concomitant]
     Active Substance: HERBALS\TURMERIC
     Dosage: 1500 MG, BID
  8. CELEXA [Concomitant]
     Active Substance: CITALOPRAM HYDROBROMIDE
     Dosage: 20 MG, QD
  9. CETIRIZINE HYDROCHLORIDE [Concomitant]
     Active Substance: CETIRIZINE HYDROCHLORIDE
     Dosage: UNK, QD

REACTIONS (1)
  - Hypersensitivity [Recovered/Resolved]

NARRATIVE: CASE EVENT DATE: 20250826
